FAERS Safety Report 21057980 (Version 2)
Quarter: 2023Q1

REPORT INFORMATION
  Report Type: Spontaneous
  Country: CA (occurrence: None)
  Receive Date: 20220708
  Receipt Date: 20230123
  Transmission Date: 20230418
  Serious: Yes (Life-Threatening, Hospitalization)
  Sender: FDA-Public Use
  Company Number: CA-ROCHE-3128746

PATIENT
  Age: 32 Year
  Sex: Female
  Weight: 83 kg

DRUGS (28)
  1. ACTEMRA [Suspect]
     Active Substance: TOCILIZUMAB
     Indication: Rheumatoid arthritis
     Dosage: DRUG DOSE FIRST ADMINISTERED IS NOT PROVIDED
     Route: 042
  2. ACTEMRA [Suspect]
     Active Substance: TOCILIZUMAB
     Route: 042
  3. ACTEMRA [Suspect]
     Active Substance: TOCILIZUMAB
     Route: 042
  4. ACTEMRA [Suspect]
     Active Substance: TOCILIZUMAB
     Route: 042
  5. ACTEMRA [Suspect]
     Active Substance: TOCILIZUMAB
     Route: 042
  6. ACTEMRA [Suspect]
     Active Substance: TOCILIZUMAB
     Route: 042
  7. ACTEMRA [Suspect]
     Active Substance: TOCILIZUMAB
     Route: 042
  8. ACTEMRA [Suspect]
     Active Substance: TOCILIZUMAB
     Route: 042
  9. ACTEMRA [Suspect]
     Active Substance: TOCILIZUMAB
     Route: 042
  10. ACTEMRA [Suspect]
     Active Substance: TOCILIZUMAB
     Route: 042
  11. ACTEMRA [Suspect]
     Active Substance: TOCILIZUMAB
     Route: 042
  12. ACTEMRA [Suspect]
     Active Substance: TOCILIZUMAB
     Route: 042
  13. MEDROXYPROGESTERONE ACETATE [Concomitant]
     Active Substance: MEDROXYPROGESTERONE ACETATE
  14. AZATHIOPRINE [Concomitant]
     Active Substance: AZATHIOPRINE
  15. MICARDIS [Concomitant]
     Active Substance: TELMISARTAN
  16. EPIPEN JR [Concomitant]
     Active Substance: EPINEPHRINE
     Dosage: 0.15MG/0.3ML
     Route: 030
  17. SPIRIVA [Concomitant]
     Active Substance: TIOTROPIUM BROMIDE MONOHYDRATE
     Route: 065
  18. ARAVA [Concomitant]
     Active Substance: LEFLUNOMIDE
     Route: 065
  19. DEXILANT [Concomitant]
     Active Substance: DEXLANSOPRAZOLE
     Dosage: DELAYED RELEASE
  20. CETIRIZINE HYDROCHLORIDE [Concomitant]
     Active Substance: CETIRIZINE HYDROCHLORIDE
  21. DICLOFENAC [Concomitant]
     Active Substance: DICLOFENAC
     Dosage: (OTIC), FREQUENCY : AS REQUIRED
     Route: 001
  22. MONTELUKAST [Concomitant]
     Active Substance: MONTELUKAST SODIUM
  23. PREVACID [Concomitant]
     Active Substance: LANSOPRAZOLE
  24. ADVAIR HFA [Concomitant]
     Active Substance: FLUTICASONE PROPIONATE\SALMETEROL XINAFOATE
  25. MOXIFLOXACIN HYDROCHLORIDE [Concomitant]
     Active Substance: MOXIFLOXACIN HYDROCHLORIDE
  26. CELEBREX [Concomitant]
     Active Substance: CELECOXIB
  27. CELEBREX [Concomitant]
     Active Substance: CELECOXIB
  28. VENTOLIN [Concomitant]
     Active Substance: ALBUTEROL SULFATE
     Indication: Asthma

REACTIONS (37)
  - Oropharyngeal pain [Not Recovered/Not Resolved]
  - Device breakage [Not Recovered/Not Resolved]
  - Hypersensitivity [Not Recovered/Not Resolved]
  - Nasopharyngitis [Not Recovered/Not Resolved]
  - Blood pressure diastolic abnormal [Not Recovered/Not Resolved]
  - Tooth infection [Not Recovered/Not Resolved]
  - Allergy to animal [Not Recovered/Not Resolved]
  - Pharyngitis [Not Recovered/Not Resolved]
  - Gait disturbance [Not Recovered/Not Resolved]
  - Angioedema [Not Recovered/Not Resolved]
  - Fatigue [Not Recovered/Not Resolved]
  - Weight increased [Not Recovered/Not Resolved]
  - Blood pressure diastolic increased [Not Recovered/Not Resolved]
  - Dysphonia [Not Recovered/Not Resolved]
  - Aphonia [Not Recovered/Not Resolved]
  - Gastrooesophageal reflux disease [Not Recovered/Not Resolved]
  - Blood pressure systolic increased [Not Recovered/Not Resolved]
  - Urinary tract infection [Not Recovered/Not Resolved]
  - Pain [Not Recovered/Not Resolved]
  - Blood pressure increased [Not Recovered/Not Resolved]
  - Rhinitis allergic [Not Recovered/Not Resolved]
  - Pharyngeal swelling [Not Recovered/Not Resolved]
  - Nervousness [Not Recovered/Not Resolved]
  - Headache [Not Recovered/Not Resolved]
  - Influenza [Not Recovered/Not Resolved]
  - Red blood cell count increased [Not Recovered/Not Resolved]
  - Chest discomfort [Not Recovered/Not Resolved]
  - Vertigo [Not Recovered/Not Resolved]
  - Pulmonary pain [Not Recovered/Not Resolved]
  - Total lung capacity abnormal [Not Recovered/Not Resolved]
  - Anaphylactic reaction [Not Recovered/Not Resolved]
  - Heart rate increased [Not Recovered/Not Resolved]
  - Haemoglobin increased [Not Recovered/Not Resolved]
  - Arthralgia [Not Recovered/Not Resolved]
  - Weight decreased [Not Recovered/Not Resolved]
  - Infusion related reaction [Not Recovered/Not Resolved]
  - Dyspnoea [Not Recovered/Not Resolved]
